FAERS Safety Report 6836938-5 (Version None)
Quarter: 2010Q3

REPORT INFORMATION
  Report Type: 
  Country: None (occurrence: None)
  Receive Date: 20100708
  Receipt Date: 20100629
  Transmission Date: 20110219
  Serious: Yes (Death)
  Sender: FDA-Public Use
  Company Number: 2010-2272

PATIENT
  Age: 57 Year
  Sex: Female

DRUGS (6)
  1. DYSPORT [Suspect]
     Indication: SKIN WRINKLING
     Dates: start: 20091113, end: 20091113
  2. BOTOX [Suspect]
     Indication: SKIN WRINKLING
     Dates: start: 20091113, end: 20091113
  3. TRAODONE (TRAZODONE) [Concomitant]
  4. INSULIN (INSULIN) [Concomitant]
  5. PAIN MEDICATION (MENTHOL W / METHYL SALICYLATE) [Concomitant]
  6. ANTIDEPRESSANT (ANTIDEPRESSANTS) [Suspect]

REACTIONS (2)
  - FALL [None]
  - HEAD INJURY [None]
